FAERS Safety Report 4297772-6 (Version None)
Quarter: 2004Q1

REPORT INFORMATION
  Report Type: 
  Country: None (occurrence: None)
  Receive Date: 20040217
  Receipt Date: 20040217
  Transmission Date: 20041129
  Serious: Yes (Hospitalization)
  Sender: FDA-Public Use
  Company Number: None

PATIENT
  Age: 66 Year
  Sex: Male

DRUGS (11)
  1. PROLIXIN [Suspect]
     Indication: SCHIZOPHRENIA
     Dosage: 25MG Q 3 WEEKS INTRAMUSCULAR
     Route: 030
     Dates: start: 20040110, end: 20040118
  2. FLUPHENAZINE [Concomitant]
  3. PREVACID [Concomitant]
  4. COLACE [Concomitant]
  5. CEFAZOLIN [Concomitant]
  6. PERCOCET [Concomitant]
  7. ACETAMINOPHEN [Concomitant]
  8. FUROSEMIDE [Concomitant]
  9. NORVASC [Concomitant]
  10. DEPAKOTE [Concomitant]
  11. SEROQUEL [Concomitant]

REACTIONS (5)
  - COGWHEEL RIGIDITY [None]
  - DRUG TOXICITY [None]
  - EXTRAPYRAMIDAL DISORDER [None]
  - MUSCLE TIGHTNESS [None]
  - TREMOR [None]
